FAERS Safety Report 25021262 (Version 1)
Quarter: 2025Q1

REPORT INFORMATION
  Report Type: Spontaneous
  Country: US (occurrence: US)
  Receive Date: 20250228
  Receipt Date: 20250228
  Transmission Date: 20250409
  Serious: No
  Sender: ELI LILLY AND COMPANY
  Company Number: US-ELI_LILLY_AND_COMPANY-US202502004540

PATIENT
  Age: 36 Year
  Sex: Female

DRUGS (2)
  1. EMGALITY [Suspect]
     Active Substance: GALCANEZUMAB-GNLM
     Indication: Migraine with aura
     Route: 058
     Dates: start: 20221128
  2. EMGALITY [Suspect]
     Active Substance: GALCANEZUMAB-GNLM
     Indication: Migraine with aura
     Route: 058

REACTIONS (3)
  - Product administered at inappropriate site [Unknown]
  - Drug ineffective [Unknown]
  - Injection site pain [Not Recovered/Not Resolved]
